FAERS Safety Report 8351343 (Version 2)
Quarter: 2013Q2

REPORT INFORMATION
  Report Type: Report from Study
  Country: JP (occurrence: JP)
  Receive Date: 20120124
  Receipt Date: 20130527
  Transmission Date: 20140414
  Serious: Yes (Death)
  Sender: FDA-Public Use
  Company Number: PHHY2012JP005555

PATIENT
  Age: 62 Year
  Sex: Male

DRUGS (10)
  1. NEORAL [Suspect]
     Indication: RENAL TRANSPLANT
     Dosage: BETWEEN 125 AND 250 MG/DAY
     Route: 048
     Dates: start: 20100310, end: 20100322
  2. NEORAL [Suspect]
     Dosage: 150-250 MG/DAY
     Route: 048
     Dates: start: 20100324
  3. SANDIMMUN [Suspect]
     Indication: RENAL TRANSPLANT
     Dosage: 75 MG PER DAY
     Route: 042
     Dates: start: 20100323, end: 20100323
  4. SIMULECT [Concomitant]
     Indication: RENAL TRANSPLANT
     Dosage: 20 MG, UNK
     Route: 042
     Dates: start: 20100323
  5. SIMULECT [Concomitant]
     Dosage: 20 MG, UNK
     Route: 042
     Dates: start: 20100327
  6. CELLCEPT [Concomitant]
     Indication: RENAL TRANSPLANT
     Dosage: 1000 MG, UNK
     Route: 048
     Dates: start: 20100310
  7. CELLCEPT [Concomitant]
     Dosage: 1500 MG, UNK
     Route: 048
     Dates: start: 20110302
  8. RITUXAN [Concomitant]
     Dosage: 500 MG, UNK
     Route: 042
     Dates: start: 20100309, end: 20100309
  9. SOLU-MEDROL [Concomitant]
     Indication: RENAL TRANSPLANT
     Dosage: UNK UKN, UNK
     Route: 042
     Dates: start: 20100324, end: 201004
  10. MEDROL [Concomitant]
     Indication: RENAL TRANSPLANT
     Dosage: UNK UKN, UNK
     Route: 048
     Dates: start: 201004

REACTIONS (1)
  - Death [Fatal]
